FAERS Safety Report 11172205 (Version 1)
Quarter: 2015Q2

REPORT INFORMATION
  Report Type: Spontaneous
  Country: FR (occurrence: FR)
  Receive Date: 20150608
  Receipt Date: 20150608
  Transmission Date: 20150821
  Serious: Yes (Hospitalization)
  Sender: FDA-Public Use
  Company Number: FR-TEVA-567501ISR

PATIENT
  Age: 16 Year
  Sex: Female

DRUGS (1)
  1. LEELOO 0.1 MG/0.02 MG [Suspect]
     Active Substance: ETHINYL ESTRADIOL\LEVONORGESTREL
     Indication: ORAL CONTRACEPTION
     Dosage: 1 DOSAGE FORMS DAILY; 1DF= ETHINYLESTRADIOL 0.02 MG + LEVONORGESTREL 0.1 MG
     Route: 048
     Dates: end: 2015

REACTIONS (3)
  - Abortion induced [Unknown]
  - Drug ineffective [Recovered/Resolved]
  - Pregnancy on oral contraceptive [Unknown]

NARRATIVE: CASE EVENT DATE: 20150209
